FAERS Safety Report 8565963-1 (Version None)
Quarter: 2012Q3

REPORT INFORMATION
  Report Type: 
  Country: None (occurrence: None)
  Receive Date: 20120803
  Receipt Date: 20110810
  Transmission Date: 20120928
  Serious: No
  Sender: FDA-Public Use
  Company Number: US-ABBOTT-11P-163-0845124-00

PATIENT
  Sex: Female

DRUGS (4)
  1. CRESTOR [Concomitant]
     Indication: PRODUCT USED FOR UNKNOWN INDICATION
     Route: 048
  2. NIASPAN [Suspect]
     Indication: PRODUCT USED FOR UNKNOWN INDICATION
     Route: 048
  3. ASPIRIN [Concomitant]
     Indication: PRODUCT USED FOR UNKNOWN INDICATION
     Dosage: EVERY MORNING
     Route: 048
  4. GLUCOPHAGE [Concomitant]
     Indication: DIABETES PROPHYLAXIS
     Dosage: DAILY

REACTIONS (4)
  - HYPERPARATHYROIDISM [None]
  - BLOOD CALCIUM INCREASED [None]
  - FLUSHING [None]
  - MYALGIA [None]
